FAERS Safety Report 4891903-2 (Version None)
Quarter: 2006Q1

REPORT INFORMATION
  Report Type: 
  Country: None (occurrence: None)
  Receive Date: 20060123
  Receipt Date: 20060109
  Transmission Date: 20060701
  Serious: Yes (Hospitalization)
  Sender: FDA-Public Use
  Company Number: 2005166504

PATIENT
  Age: 57 Year
  Sex: 0

DRUGS (4)
  1. DOXORUBICIN (DOXORUBICIN) [Suspect]
     Indication: BREAST CANCER
     Dosage: (95.5 MG, CYCLICAL), INTRAVENOUS
     Route: 042
     Dates: start: 20051102
  2. CYCLOPHOSPHAMIDE [Suspect]
     Indication: BREAST CANCER
     Dosage: (955 MG, CYCLICAL), INTRAVENOUS
     Route: 042
     Dates: start: 20051102
  3. DOCETAXEL (DOCETAXEL) [Suspect]
     Indication: BREAST CANCER
     Dosage: (143.25 MG, CYCLICAL) INTRAVENOUS
     Route: 042
     Dates: start: 20051102
  4. LORAZEPAM [Concomitant]

REACTIONS (3)
  - CARDIOVASCULAR DISORDER [None]
  - CATHETER RELATED INFECTION [None]
  - DIZZINESS [None]
